FAERS Safety Report 7339271-0 (Version None)
Quarter: 2011Q1

REPORT INFORMATION
  Report Type: 
  Country: None (occurrence: None)
  Receive Date: 20110308
  Receipt Date: 20110303
  Transmission Date: 20110831
  Serious: Yes (Death, Other)
  Sender: FDA-Public Use
  Company Number: JP-PFIZER INC-2011040903

PATIENT
  Age: 78 Year
  Sex: Male

DRUGS (5)
  1. CELECOXIB [Concomitant]
     Dosage: UNK
     Route: 048
     Dates: start: 20110127
  2. TERNELIN [Concomitant]
     Dosage: UNK
     Route: 048
     Dates: start: 20110127
  3. REBAMIPIDE [Concomitant]
     Dosage: UNK
     Route: 048
     Dates: start: 20110127
  4. LYRICA [Suspect]
     Dosage: 75 MG, 2X/DAY
     Route: 048
     Dates: start: 20110127, end: 20110201
  5. LYRICA [Suspect]
     Dosage: 150 MG IN THE MORNING AND 75 MG IN THE EVENING
     Route: 048
     Dates: start: 20110201

REACTIONS (5)
  - EMPHYSEMA [None]
  - FALL [None]
  - DEPRESSED MOOD [None]
  - DECREASED APPETITE [None]
  - CARDIO-RESPIRATORY ARREST [None]
